FAERS Safety Report 24676699 (Version 5)
Quarter: 2025Q2

REPORT INFORMATION
  Report Type: Report from Study
  Country: KR (occurrence: KR)
  Receive Date: 20241128
  Receipt Date: 20250527
  Transmission Date: 20250717
  Serious: Yes (Hospitalization, Other)
  Sender: ABBVIE
  Company Number: KR-ABBVIE-6022296

PATIENT
  Age: 37 Year
  Sex: Female

DRUGS (18)
  1. SKYRIZI [Suspect]
     Active Substance: RISANKIZUMAB-RZAA
     Indication: Psoriasis
     Route: 058
     Dates: start: 20230830, end: 20230830
  2. SKYRIZI [Suspect]
     Active Substance: RISANKIZUMAB-RZAA
     Route: 058
     Dates: start: 20230927, end: 20230927
  3. SKYRIZI [Suspect]
     Active Substance: RISANKIZUMAB-RZAA
     Route: 058
     Dates: start: 20240906, end: 20240906
  4. SKYRIZI [Suspect]
     Active Substance: RISANKIZUMAB-RZAA
     Route: 058
     Dates: start: 20240313, end: 20240313
  5. SKYRIZI [Suspect]
     Active Substance: RISANKIZUMAB-RZAA
     Route: 058
     Dates: start: 20240605, end: 20240605
  6. SKYRIZI [Suspect]
     Active Substance: RISANKIZUMAB-RZAA
     Route: 058
     Dates: start: 20231221, end: 20231221
  7. SKYRIZI [Suspect]
     Active Substance: RISANKIZUMAB-RZAA
     Route: 058
  8. Ursa daewoong [Concomitant]
     Indication: Hepatobiliary disorder prophylaxis
     Route: 048
     Dates: start: 20230918, end: 20230920
  9. Feroba you sr [Concomitant]
     Indication: Anaemia prophylaxis
     Dosage: DRIED FERROUS SULFATE 256  (80  AS IRON)
     Route: 048
     Dates: start: 20230913, end: 20230926
  10. Aclofen [Concomitant]
     Indication: Pain prophylaxis
     Dosage: 100MG(ACECLOFENAC 100 )
     Route: 048
     Dates: start: 20230914, end: 20231207
  11. Venitol [Concomitant]
     Indication: Pain prophylaxis
     Dosage: MICRONIZED PURIFIED FLAVONOID FRACTION 500 MG
     Route: 048
     Dates: start: 20230914, end: 20231207
  12. CELEBREX [Concomitant]
     Active Substance: CELECOXIB
     Indication: Pain prophylaxis
     Route: 048
     Dates: start: 20231024, end: 20231122
  13. RAMOSETRON HYDROCHLORIDE [Concomitant]
     Active Substance: RAMOSETRON HYDROCHLORIDE
     Indication: Prophylaxis of nausea and vomiting
     Dosage: 0.3MG (VIAL)
     Route: 042
     Dates: start: 20230913, end: 20230916
  14. Cefaculor [Concomitant]
     Indication: Infection prophylaxis
     Route: 048
     Dates: start: 20231124, end: 20231130
  15. Entelon [Concomitant]
     Indication: Pain prophylaxis
     Dosage: VITIS VINIFERA SEED DRIED EXTRACT 150
     Route: 048
     Dates: start: 20231024, end: 20231122
  16. ACETAMINOPHEN\TRAMADOL [Concomitant]
     Active Substance: ACETAMINOPHEN\TRAMADOL
     Indication: Pain prophylaxis
     Dosage: ACETAMINOPHEN 325 , TRAMADOL HYDROCHLORIDE 37.5
     Route: 048
     Dates: start: 20230914, end: 20231207
  17. ACETYLCYSTEINE [Concomitant]
     Active Substance: ACETYLCYSTEINE
     Indication: Lung disorder
     Route: 042
     Dates: start: 20230913, end: 20230916
  18. Flumarin [Concomitant]
     Indication: Infection prophylaxis
     Route: 042
     Dates: start: 20230912, end: 20230926

REACTIONS (2)
  - Ankle fracture [Recovered/Resolved]
  - Medical device removal [Recovered/Resolved]

NARRATIVE: CASE EVENT DATE: 20230910
